FAERS Safety Report 9917843 (Version 1)
Quarter: 2014Q1

REPORT INFORMATION
  Report Type: Spontaneous
  Country: US (occurrence: US)
  Receive Date: 20140221
  Receipt Date: 20140221
  Transmission Date: 20141002
  Serious: Yes (Hospitalization)
  Sender: FDA-Public Use
  Company Number: US-GLAXOSMITHKLINE-A1061003A

PATIENT
  Age: 70 Year
  Sex: Male

DRUGS (9)
  1. ADVAIR [Suspect]
     Indication: ASTHMA
     Dosage: 1PUFF TWICE PER DAY
     Route: 055
     Dates: start: 2009
  2. SYNTHROID [Concomitant]
  3. SIMVASTATIN [Concomitant]
  4. FLOMAX [Concomitant]
  5. METOPROLOL [Concomitant]
  6. LORATADINE [Concomitant]
  7. SUPRESSIN [Concomitant]
  8. PROTON PUMP INHIBITOR [Concomitant]
  9. IPRATROPIUM BROMIDE [Concomitant]

REACTIONS (6)
  - Loss of consciousness [Recovering/Resolving]
  - Impaired driving ability [Recovering/Resolving]
  - Aphonia [Recovering/Resolving]
  - Dysphonia [Recovering/Resolving]
  - Dysphonia [Recovering/Resolving]
  - Drug ineffective [Recovering/Resolving]
